FAERS Safety Report 4901403-9 (Version None)
Quarter: 2006Q1

REPORT INFORMATION
  Report Type: 
  Country: None (occurrence: None)
  Receive Date: 20060202
  Receipt Date: 20060124
  Transmission Date: 20060701
  Serious: Yes (Death)
  Sender: FDA-Public Use
  Company Number: 163-20785-05120511

PATIENT
  Age: 73 Year
  Sex: Male

DRUGS (1)
  1. THALOMID [Suspect]
     Indication: MYELODYSPLASTIC SYNDROME
     Dosage: 400 MG, DAILY, ORAL
     Route: 048
     Dates: start: 20051001, end: 20051201

REACTIONS (2)
  - FAILURE TO THRIVE [None]
  - REFUSAL OF TREATMENT BY PATIENT [None]
